APPROVED DRUG PRODUCT: MODAFINIL
Active Ingredient: MODAFINIL
Strength: 200MG
Dosage Form/Route: TABLET;ORAL
Application: A076715 | Product #002
Applicant: WATSON LABORATORIES INC
Approved: Nov 1, 2012 | RLD: No | RS: No | Type: DISCN